FAERS Safety Report 6544186-1 (Version None)
Quarter: 2010Q1

REPORT INFORMATION
  Report Type: 
  Country: None (occurrence: None)
  Receive Date: 20100119
  Receipt Date: 20100119
  Transmission Date: 20100710
  Serious: No
  Sender: FDA-Public Use
  Company Number: None

PATIENT
  Age: 63 Year
  Sex: Female
  Weight: 68.0396 kg

DRUGS (1)
  1. MOTRIN [Suspect]

REACTIONS (8)
  - CHEST DISCOMFORT [None]
  - DIARRHOEA [None]
  - FEELING COLD [None]
  - GASTRIC DISORDER [None]
  - INFLUENZA [None]
  - PRODUCT QUALITY ISSUE [None]
  - VIRAL INFECTION [None]
  - VOMITING [None]
